FAERS Safety Report 18578664 (Version 1)
Quarter: 2020Q4

REPORT INFORMATION
  Report Type: Spontaneous
  Country: GB (occurrence: GB)
  Receive Date: 20201204
  Receipt Date: 20201204
  Transmission Date: 20210114
  Serious: Yes (Other)
  Sender: FDA-Public Use
  Company Number: GB-TEVA-2020-GB-1854607

PATIENT
  Age: 56 Year
  Sex: Female
  Weight: 80 kg

DRUGS (3)
  1. NITROFURANTOIN. [Suspect]
     Active Substance: NITROFURANTOIN
     Dosage: 200 MG
     Dates: start: 20201023
  2. ESTRIOL [Concomitant]
     Active Substance: ESTRIOL
     Dosage: 1 DOSAGE FORMS DAILY; INTERNALLY AND EXTERNALLY AS DIRECTED EVERY NIGHT.
     Dates: start: 20201030
  3. CLOBETASOL PROPIONATE. [Concomitant]
     Active Substance: CLOBETASOL PROPIONATE
     Dosage: FOR 2 WEEKS, UNIT DOSE: 2 DF.
     Dates: start: 20201030

REACTIONS (2)
  - Headache [Unknown]
  - Abdominal discomfort [Recovered/Resolved]
